FAERS Safety Report 5274478-8 (Version None)
Quarter: 2007Q1

REPORT INFORMATION
  Report Type: 
  Country: None (occurrence: None)
  Receive Date: 20070320
  Receipt Date: 20070313
  Transmission Date: 20070707
  Serious: Yes (Other)
  Sender: FDA-Public Use
  Company Number: 231153K07USA

PATIENT
  Age: 46 Year
  Sex: Female
  Weight: 72.1219 kg

DRUGS (5)
  1. REBIF [Suspect]
     Indication: MULTIPLE SCLEROSIS
     Dosage: 44 MCG, 3 IN 1 WEEKS, SUBCUTANEOUS
     Route: 058
     Dates: start: 20060424
  2. PAXIL [Suspect]
     Dosage: SEE IMAGE
     Dates: end: 20060901
  3. PAXIL [Suspect]
     Dosage: SEE IMAGE
     Dates: start: 20060901, end: 20061001
  4. PAXIL [Suspect]
     Dosage: SEE IMAGE
     Dates: start: 19960101
  5. DARVOCET [Concomitant]

REACTIONS (2)
  - CONVULSION [None]
  - LOSS OF CONSCIOUSNESS [None]
